FAERS Safety Report 5804960-3 (Version None)
Quarter: 2008Q3

REPORT INFORMATION
  Report Type: 
  Country: None (occurrence: None)
  Receive Date: 20080709
  Receipt Date: 20080627
  Transmission Date: 20090109
  Serious: Yes (Other)
  Sender: FDA-Public Use
  Company Number: US-PFIZER INC-2008047589

PATIENT
  Sex: Female
  Weight: 57.2 kg

DRUGS (24)
  1. LYRICA [Suspect]
     Indication: NEURALGIA
     Route: 048
     Dates: start: 20080523, end: 20080530
  2. LYRICA [Suspect]
     Indication: PERONEAL NERVE INJURY
  3. VITAMIN B COMPLEX CAP [Suspect]
     Indication: PERONEAL NERVE INJURY
     Route: 048
     Dates: start: 20080101, end: 20080101
  4. AMIODARONE HCL [Concomitant]
     Route: 048
  5. VALSARTAN [Concomitant]
     Route: 048
  6. ADVAIR DISKUS 100/50 [Concomitant]
     Route: 055
  7. REQUIP [Concomitant]
     Dosage: DAILY DOSE:4MG-TEXT:1MG TID AND 2MG AT NIGHT
     Route: 048
  8. MEVACOR [Concomitant]
     Route: 048
  9. LEVOXYL [Concomitant]
     Route: 048
  10. ACETYLSALICYLIC ACID SRT [Concomitant]
     Route: 048
  11. FOSAMAX [Concomitant]
     Route: 048
  12. PLAVIX [Concomitant]
     Route: 048
  13. DETROL [Concomitant]
     Route: 048
  14. NEXIUM [Concomitant]
     Route: 048
  15. MULTIVITAMIN [Concomitant]
     Route: 048
  16. FOLIC ACID [Concomitant]
     Route: 048
  17. CALCIUM [Concomitant]
     Route: 048
  18. MIRALAX [Concomitant]
  19. FISH OIL [Concomitant]
     Route: 048
  20. COMBIVENT [Concomitant]
     Dosage: TEXT:2 PUFFS
     Route: 055
  21. VITAMIN D [Concomitant]
     Route: 048
  22. CHLORDIAZEPOXIDE W/CLIDINIUM BROMIDE [Concomitant]
     Route: 048
  23. FERROUS SULFATE TAB [Concomitant]
     Indication: ANAEMIA
     Route: 048
     Dates: start: 20080523
  24. FERROUS SULFATE TAB [Concomitant]
     Indication: BLOOD IRON DECREASED

REACTIONS (11)
  - ABASIA [None]
  - ATAXIA [None]
  - BALANCE DISORDER [None]
  - CONFUSIONAL STATE [None]
  - COORDINATION ABNORMAL [None]
  - DIZZINESS [None]
  - DRUG INEFFECTIVE [None]
  - HEADACHE [None]
  - JOINT SWELLING [None]
  - OEDEMA PERIPHERAL [None]
  - SOMNOLENCE [None]
